FAERS Safety Report 19094392 (Version 8)
Quarter: 2025Q4

REPORT INFORMATION
  Report Type: Report from Study
  Country: JP (occurrence: JP)
  Receive Date: 20210406
  Receipt Date: 20251230
  Transmission Date: 20260118
  Serious: Yes (Hospitalization, Other)
  Sender: ABBVIE
  Company Number: JP-TAKEDA-2021TJP011705

PATIENT
  Age: 73 Year
  Sex: Male

DRUGS (1)
  1. LEUPROLIDE ACETATE [Suspect]
     Active Substance: LEUPROLIDE ACETATE
     Indication: Bulbospinal muscular atrophy congenital
     Dosage: 11.25 MILLIGRAM, Q3MONTHS
     Route: 058
     Dates: start: 20200910

REACTIONS (7)
  - Contusion [Recovered/Resolved]
  - Fall [Recovered/Resolved]
  - Rash [Recovered/Resolved]
  - Hypokinesia [Recovered/Resolved]
  - Motor dysfunction [Recovered/Resolved]
  - COVID-19 [Recovered/Resolved]
  - Extradural haematoma [Recovered/Resolved]

NARRATIVE: CASE EVENT DATE: 20210301
